FAERS Safety Report 9255202 (Version 2)
Quarter: 2014Q1

REPORT INFORMATION
  Report Type: Spontaneous
  Country: US (occurrence: None)
  Receive Date: 20121212
  Receipt Date: 20130314
  Transmission Date: 20141002
  Serious: No
  Sender: FDA-Public Use
  Company Number: 1211USA003642

PATIENT
  Age: 52 Year
  Sex: Male

DRUGS (4)
  1. PEGINTRON [Suspect]
     Indication: HEPATITIS C
     Dosage: UNK, SUBCUTANEOUS
     Route: 058
     Dates: start: 20121024
  2. RIBAVIRIN [Suspect]
     Indication: HEPATITIS C
     Dosage: UNK, ORAL
     Route: 048
     Dates: start: 20121025, end: 2012
  3. PEGASYS (PEGINTERFERON ALFA-2A) [Suspect]
     Indication: HEPATITIS C
     Dosage: UNK
     Dates: start: 20050204, end: 20071026
  4. VICTRELIS [Suspect]
     Indication: HEPATITIS C
     Dosage: UNK, ORAL
     Route: 048
     Dates: start: 20121117

REACTIONS (14)
  - Hyperhidrosis [None]
  - Nausea [None]
  - Pyrexia [None]
  - Chills [None]
  - Pain [None]
  - Influenza like illness [None]
  - Fatigue [None]
  - Decreased appetite [None]
  - Therapeutic response decreased [None]
  - Asthenia [None]
  - Dysgeusia [None]
  - Dysgeusia [None]
  - Neutrophil count decreased [None]
  - Feeling of body temperature change [None]
